FAERS Safety Report 12737692 (Version 2)
Quarter: 2018Q2

REPORT INFORMATION
  Report Type: Spontaneous
  Country: US (occurrence: US)
  Receive Date: 20160912
  Receipt Date: 20180515
  Transmission Date: 20180711
  Serious: No
  Sender: FDA-Public Use
  Company Number: US-SA-2016SA116878

PATIENT
  Age: 61 Year
  Sex: Male

DRUGS (5)
  1. HUMULIN U [Concomitant]
     Active Substance: INSULIN HUMAN
     Dosage: DOSE:20 UNIT(S)
  2. HUMULIN U [Concomitant]
     Active Substance: INSULIN HUMAN
     Dosage: DOSE:10 UNIT(S)
  3. SOLOSTAR [Concomitant]
     Active Substance: DEVICE
  4. HUMULIN U [Concomitant]
     Active Substance: INSULIN HUMAN
     Dosage: DOSE:30 UNIT(S)
  5. TOUJEO [Suspect]
     Active Substance: INSULIN GLARGINE
     Indication: TYPE 2 DIABETES MELLITUS
     Dosage: DOSE- 20 TO 30 UNITS
     Route: 065

REACTIONS (2)
  - Product use issue [Unknown]
  - Blood glucose increased [Unknown]
